FAERS Safety Report 5970302-6 (Version None)
Quarter: 2008Q4

REPORT INFORMATION
  Report Type: 
  Country: None (occurrence: None)
  Receive Date: 20081126
  Receipt Date: 20081017
  Transmission Date: 20090506
  Serious: No
  Sender: FDA-Public Use
  Company Number: US-ABBOTT-08P-163-0482751-00

PATIENT
  Sex: Female

DRUGS (1)
  1. SIMCOR [Suspect]
     Indication: BLOOD CHOLESTEROL INCREASED
     Route: 048
     Dates: start: 20081003

REACTIONS (5)
  - FEELING COLD [None]
  - FEELING HOT [None]
  - FLUSHING [None]
  - MUSCLE SPASMS [None]
  - NECK PAIN [None]
